FAERS Safety Report 6772860-0 (Version None)
Quarter: 2010Q2

REPORT INFORMATION
  Report Type: 
  Country: None (occurrence: None)
  Receive Date: 20100520
  Receipt Date: 20090317
  Transmission Date: 20101027
  Serious: Yes (Other)
  Sender: FDA-Public Use
  Company Number: 2009184717

PATIENT
  Age: 52 Year
  Sex: Female
  Weight: 68 kg

DRUGS (4)
  1. PROVERA [Suspect]
     Indication: MENOPAUSE
     Dates: start: 19950101, end: 19990401
  2. PREMARIN [Suspect]
     Indication: MENOPAUSE
     Dates: start: 19950101, end: 19990101
  3. ESTRATEST [Suspect]
     Indication: MENOPAUSE
     Dates: start: 19950101, end: 19990401
  4. PREMPRO [Suspect]
     Indication: MENOPAUSE
     Dates: start: 19950101, end: 19990401

REACTIONS (1)
  - BREAST CANCER FEMALE [None]
